FAERS Safety Report 7966125-9 (Version None)
Quarter: 2011Q4

REPORT INFORMATION
  Report Type: 
  Country: None (occurrence: None)
  Receive Date: 20111208
  Receipt Date: 20111129
  Transmission Date: 20120403
  Serious: Yes (Other)
  Sender: FDA-Public Use
  Company Number: TR-BAXTER-2011BH038174

PATIENT
  Age: 22 Year

DRUGS (1)
  1. FEIBA [Suspect]
     Indication: GASTROINTESTINAL HAEMORRHAGE
     Route: 065

REACTIONS (1)
  - DRUG INEFFECTIVE [None]
